FAERS Safety Report 6895316-3 (Version None)
Quarter: 2010Q3

REPORT INFORMATION
  Report Type: 
  Country: None (occurrence: None)
  Receive Date: 20100728
  Receipt Date: 20100720
  Transmission Date: 20110219
  Serious: Yes (Hospitalization)
  Sender: FDA-Public Use
  Company Number: RB-12115-2010

PATIENT
  Age: 42 Year
  Sex: Male

DRUGS (2)
  1. SUBUTEX [Suspect]
     Indication: PRODUCT USED FOR UNKNOWN INDICATION
  2. SUBOXONE [Suspect]
     Indication: PRODUCT USED FOR UNKNOWN INDICATION

REACTIONS (6)
  - DYSPHEMIA [None]
  - FEELING ABNORMAL [None]
  - HICCUPS [None]
  - MENTAL DISORDER [None]
  - PNEUMONIA [None]
  - TONGUE OEDEMA [None]
